FAERS Safety Report 6354795-0 (Version None)
Quarter: 2009Q3

REPORT INFORMATION
  Report Type: 
  Country: None (occurrence: None)
  Receive Date: 20090909
  Receipt Date: 20090901
  Transmission Date: 20100115
  Serious: Yes (Hospitalization)
  Sender: FDA-Public Use
  Company Number: 2009SP019303

PATIENT
  Age: 56 Year
  Sex: Male

DRUGS (4)
  1. CELESTAMINE TAB [Suspect]
     Indication: SINUSITIS
     Dosage: 2 DF, PO
     Route: 048
     Dates: start: 19980101, end: 20041001
  2. ONON (PRANLUKAST) (PRANLUKAST) [Suspect]
     Indication: RHINITIS ALLERGIC
     Dosage: 4 DF, PO
     Route: 048
     Dates: end: 20060320
  3. MONTELUKAST SODIUM [Suspect]
     Indication: ASTHMA
     Dosage: PO
     Route: 048
     Dates: start: 20041101, end: 20050601
  4. PREDONINE [Concomitant]

REACTIONS (1)
  - ALLERGIC GRANULOMATOUS ANGIITIS [None]
